FAERS Safety Report 5192269-3 (Version None)
Quarter: 2006Q4

REPORT INFORMATION
  Report Type: 
  Country: None (occurrence: None)
  Receive Date: 20061227
  Receipt Date: 20061222
  Transmission Date: 20070319
  Serious: Yes (Death, Life-Threatening, Hospitalization)
  Sender: FDA-Public Use
  Company Number: US-JNJFOC-20060304389

PATIENT
  Sex: Male
  Weight: 118.84 kg

DRUGS (8)
  1. CLADRIBINE [Suspect]
     Indication: MULTIPLE SCLEROSIS
  2. NOVANTRONE [Suspect]
     Indication: MULTIPLE SCLEROSIS
  3. COPAXONE [Concomitant]
     Indication: MULTIPLE SCLEROSIS
  4. ATORVASTATIN [Concomitant]
  5. METFORMIN HCL [Concomitant]
  6. LISINOPRIL [Concomitant]
  7. ASPIRIN [Concomitant]
  8. AMITRIPTYLINE HCL [Concomitant]

REACTIONS (4)
  - HEPATIC ENZYME INCREASED [None]
  - METASTASES TO BONE [None]
  - METASTASES TO LIVER [None]
  - OESOPHAGEAL CARCINOMA [None]
